FAERS Safety Report 18413998 (Version 5)
Quarter: 2020Q4

REPORT INFORMATION
  Report Type: Spontaneous
  Country: ES (occurrence: ES)
  Receive Date: 20201022
  Receipt Date: 20201110
  Transmission Date: 20210114
  Serious: Yes (Hospitalization, Other)
  Sender: FDA-Public Use
  Company Number: ES-PFIZER INC-2020398007

PATIENT
  Age: 74 Year
  Sex: Male

DRUGS (12)
  1. EPLERENONE. [Suspect]
     Active Substance: EPLERENONE
     Dosage: 25 MG, 1X/DAY
     Dates: start: 201707, end: 201707
  2. PATIROMER [Concomitant]
     Active Substance: PATIROMER
     Dosage: 16.8 G, 1X/DAY
  3. EPLERENONE. [Suspect]
     Active Substance: EPLERENONE
     Dosage: 25 MG, 1X/DAY
     Dates: start: 201804
  4. RAMIPRIL. [Suspect]
     Active Substance: RAMIPRIL
     Dosage: 2.5 MG, 1X/DAY
     Dates: start: 201712, end: 201801
  5. CALCIUM POLYSTYRENE SULFONATE [Suspect]
     Active Substance: CALCIUM POLYSTYRENE SULFONATE
     Dosage: UNK
  6. ENALAPRIL [Suspect]
     Active Substance: ENALAPRIL
     Dosage: 10 MG, 1X/DAY
     Dates: start: 201707, end: 201708
  7. SACUBITRIL/VALSARTAN [Concomitant]
     Active Substance: SACUBITRIL\VALSARTAN
     Dosage: 1 DF, 1X/DAY
  8. RAMIPRIL. [Suspect]
     Active Substance: RAMIPRIL
     Dosage: 1.25 MG, 1X/DAY (CONTINUOUS FOR 24 HOURS)
     Dates: start: 201709, end: 201710
  9. PATIROMER [Concomitant]
     Active Substance: PATIROMER
     Indication: HYPERKALAEMIA
     Dosage: 8.4 G, 1X/DAY
  10. NEBIVOLOL. [Suspect]
     Active Substance: NEBIVOLOL
     Dosage: 10 MG, 1X/DAY
  11. EPLERENONE. [Suspect]
     Active Substance: EPLERENONE
     Dosage: 12.5 MG, 1X/DAY
     Dates: start: 201803, end: 201803
  12. RAMIPRIL. [Suspect]
     Active Substance: RAMIPRIL
     Dosage: 5 MG, 1X/DAY
     Dates: start: 201802, end: 201805

REACTIONS (3)
  - Renal impairment [Recovering/Resolving]
  - Hypotension [Unknown]
  - Hyperkalaemia [Recovered/Resolved]

NARRATIVE: CASE EVENT DATE: 201710
